FAERS Safety Report 9918492 (Version 2)
Quarter: 2014Q1

REPORT INFORMATION
  Report Type: Spontaneous
  Country: US (occurrence: US)
  Receive Date: 20140224
  Receipt Date: 20140306
  Transmission Date: 20141002
  Serious: No
  Sender: FDA-Public Use
  Company Number: US-BIOGENIDEC-2014BI014423

PATIENT
  Sex: Male

DRUGS (8)
  1. TECFIDERA [Suspect]
     Indication: MULTIPLE SCLEROSIS
     Route: 048
     Dates: start: 20130520
  2. AMPYRA [Concomitant]
     Indication: PRODUCT USED FOR UNKNOWN INDICATION
     Dates: start: 20120621
  3. TAMSULOSIN [Concomitant]
     Indication: PRODUCT USED FOR UNKNOWN INDICATION
  4. FENOFIBRATE [Concomitant]
     Indication: PRODUCT USED FOR UNKNOWN INDICATION
  5. NEXIUM [Concomitant]
     Indication: PRODUCT USED FOR UNKNOWN INDICATION
  6. LIPITOR [Concomitant]
     Indication: PRODUCT USED FOR UNKNOWN INDICATION
  7. CELEBREX [Concomitant]
     Indication: PRODUCT USED FOR UNKNOWN INDICATION
  8. FAMCICLOVIR [Concomitant]
     Indication: PRODUCT USED FOR UNKNOWN INDICATION

REACTIONS (3)
  - Flatulence [Unknown]
  - Muscle spasms [Unknown]
  - Diarrhoea [Unknown]
